FAERS Safety Report 6961273-4 (Version None)
Quarter: 2010Q3

REPORT INFORMATION
  Report Type: 
  Country: None (occurrence: None)
  Receive Date: 20100901
  Receipt Date: 20100826
  Transmission Date: 20110219
  Serious: Yes (Death, Hospitalization)
  Sender: FDA-Public Use
  Company Number: A0871521A

PATIENT
  Sex: Male

DRUGS (1)
  1. VOTRIENT [Suspect]
     Indication: PRODUCT USED FOR UNKNOWN INDICATION
     Dosage: 200MG PER DAY
     Route: 065
     Dates: start: 20100520, end: 20100521

REACTIONS (6)
  - ANAEMIA [None]
  - BLOOD POTASSIUM INCREASED [None]
  - CEREBROVASCULAR ACCIDENT [None]
  - DEATH [None]
  - DEHYDRATION [None]
  - RENAL IMPAIRMENT [None]
